FAERS Safety Report 5343339-8 (Version None)
Quarter: 2007Q2

REPORT INFORMATION
  Report Type: 
  Country: None (occurrence: None)
  Receive Date: 20070501
  Receipt Date: 20070209
  Transmission Date: 20071010
  Serious: No
  Sender: FDA-Public Use
  Company Number: 200710806US

PATIENT
  Age: 28 Year
  Sex: Male

DRUGS (1)
  1. KETEK [Suspect]
     Indication: BRONCHITIS
     Dosage: 800 MG QD
     Dates: start: 20061213, end: 20061213

REACTIONS (1)
  - VISION BLURRED [None]
